FAERS Safety Report 15737932 (Version 1)
Quarter: 2018Q4

REPORT INFORMATION
  Report Type: Spontaneous
  Country: US (occurrence: US)
  Receive Date: 20181219
  Receipt Date: 20181219
  Transmission Date: 20190205
  Serious: No
  Sender: FDA-Public Use
  Company Number: US-DRREDDYS-USA/USA/18/0097123

PATIENT
  Age: 54 Year
  Sex: Female
  Weight: 83.2 kg

DRUGS (1)
  1. NICOTINE. [Suspect]
     Active Substance: NICOTINE
     Indication: SMOKING CESSATION THERAPY
     Route: 062
     Dates: start: 20180207

REACTIONS (4)
  - Application site irritation [Unknown]
  - Abnormal dreams [Unknown]
  - Pruritus [Unknown]
  - Incorrect product administration duration [Unknown]
